APPROVED DRUG PRODUCT: VARIBAR NECTAR
Active Ingredient: BARIUM SULFATE
Strength: 40%
Dosage Form/Route: SUSPENSION;ORAL
Application: N208143 | Product #004
Applicant: BRACCO DIAGNOSTICS INC
Approved: Jul 7, 2017 | RLD: Yes | RS: Yes | Type: RX